FAERS Safety Report 22122266 (Version 3)
Quarter: 2025Q1

REPORT INFORMATION
  Report Type: Spontaneous
  Country: US (occurrence: US)
  Receive Date: 20230321
  Receipt Date: 20250213
  Transmission Date: 20250408
  Serious: No
  Sender: BRISTOL-MYERS SQUIBB COMPANY
  Company Number: US-BRISTOL-MYERS SQUIBB COMPANY-2023-040967

PATIENT
  Age: 76 Year
  Sex: Male

DRUGS (1)
  1. ONUREG [Suspect]
     Active Substance: AZACITIDINE
     Indication: Product used for unknown indication
     Dosage: FREQUENCY: TAKE 1 TABLET ONE DAILY FOR 14 DAYS.
     Route: 048

REACTIONS (2)
  - White blood cell count decreased [Unknown]
  - COVID-19 [Unknown]
